FAERS Safety Report 25944497 (Version 2)
Quarter: 2025Q4

REPORT INFORMATION
  Report Type: Spontaneous
  Country: RU (occurrence: RU)
  Receive Date: 20251021
  Receipt Date: 20251111
  Transmission Date: 20260118
  Serious: Yes (Other)
  Sender: ORGANON
  Company Number: RU-ORGANON-O2510RUS001679

PATIENT
  Age: 3 Year

DRUGS (3)
  1. SINGULAIR [Suspect]
     Active Substance: MONTELUKAST SODIUM
     Indication: Cough
     Dosage: UNK (FOR A MONTH)
  2. PULMICORT TURBUHALER [Concomitant]
     Active Substance: BUDESONIDE
     Dosage: UNK
  3. Berodual inhalations [Concomitant]
     Dosage: UNK (INHALATIONS)

REACTIONS (4)
  - Drug dependence [Unknown]
  - Bronchospasm [Unknown]
  - Off label use [Unknown]
  - Prescription drug used without a prescription [Unknown]

NARRATIVE: CASE EVENT DATE: 20250901
